FAERS Safety Report 11773092 (Version 2)
Quarter: 2015Q4

REPORT INFORMATION
  Report Type: Spontaneous
  Country: FR (occurrence: FR)
  Receive Date: 20151124
  Receipt Date: 20151201
  Transmission Date: 20160304
  Serious: Yes (Death)
  Sender: FDA-Public Use
  Company Number: FR-SA-2015SA187675

PATIENT
  Age: 83 Year
  Sex: Female

DRUGS (15)
  1. TOPALGIC LP [Concomitant]
     Active Substance: TRAMADOL
  2. DUPHALAC [Concomitant]
     Active Substance: LACTULOSE
  3. CALCIPARINE [Suspect]
     Active Substance: HEPARIN CALCIUM
     Route: 058
     Dates: start: 20150515, end: 20150715
  4. FUMAFER [Concomitant]
     Active Substance: FERROUS FUMARATE
  5. SPECIAFOLDINE [Concomitant]
     Active Substance: FOLIC ACID
  6. CORTANCYL [Concomitant]
     Active Substance: PREDNISONE
     Dosage: 49 MG/J  AND EITHER 54 MG/DAY
     Dates: start: 20150717
  7. PREDNISONE. [Suspect]
     Active Substance: PREDNISONE
     Route: 048
     Dates: start: 20150425, end: 20150813
  8. ESOMEPRAZOLE [Concomitant]
     Active Substance: ESOMEPRAZOLE
     Dosage: 40 MG DAILY (AND EITHER 20 MG/DAY)
     Route: 048
  9. PROLIA [Concomitant]
     Active Substance: DENOSUMAB
     Dosage: 1/6 MONTHS
  10. METHOTREXATE [Interacting]
     Active Substance: METHOTREXATE
     Dosage: DOSE:1 .4 286  MG  (10  MG,1  IN  1  WEEK(S))?DAILY DOSE 1. 0714  MG  (7.5  MG, 1  IN  1  WEEK(S))
     Route: 048
     Dates: start: 20150715, end: 20150808
  11. CALTRATE [Concomitant]
     Active Substance: CALCIUM CARBONATE
  12. METHOTREXATE [Interacting]
     Active Substance: METHOTREXATE
     Dosage: DOSE:1 .4 286  MG  (10  MG,1  IN  1  WEEK(S))?DAILY DOSE 1. 0714  MG  (7.5  MG, 1  IN  1  WEEK(S))
     Route: 048
     Dates: start: 20150515, end: 20150715
  13. KARDEGIC [Interacting]
     Active Substance: ASPIRIN LYSINE
     Route: 048
     Dates: start: 20150715
  14. LOVENOX [Suspect]
     Active Substance: ENOXAPARIN SODIUM
     Route: 058
     Dates: start: 20150423, end: 20150514
  15. LEVOTHYROX [Concomitant]
     Active Substance: LEVOTHYROXINE

REACTIONS (5)
  - Thrombocytopenia [Recovering/Resolving]
  - Leukopenia [Recovering/Resolving]
  - Drug interaction [Unknown]
  - Chronic kidney disease [Fatal]
  - Respiratory tract infection [Fatal]

NARRATIVE: CASE EVENT DATE: 20150808
